FAERS Safety Report 6338955-0 (Version None)
Quarter: 2009Q3

REPORT INFORMATION
  Report Type: 
  Country: None (occurrence: None)
  Receive Date: 20090903
  Receipt Date: 20090825
  Transmission Date: 20100115
  Serious: Yes (Hospitalization)
  Sender: FDA-Public Use
  Company Number: ES-ASTRAZENECA-2009SE09713

PATIENT
  Age: 59 Year
  Sex: Male

DRUGS (6)
  1. ATACAND [Suspect]
     Indication: HYPERTENSION
     Route: 048
     Dates: start: 20060101
  2. IBUPROFEN [Interacting]
     Indication: ARTHRALGIA
     Route: 048
     Dates: start: 20090609, end: 20090622
  3. AMERIDE [Interacting]
     Indication: HYPERTENSION
     Dosage: 5/50 TABLETS, ONCE DAILY
     Route: 048
     Dates: start: 20070701, end: 20090623
  4. OMEPRAZOLE [Concomitant]
     Indication: GASTRITIS PROPHYLAXIS
     Route: 048
     Dates: start: 20081201
  5. LYRICA [Concomitant]
     Indication: ARTHRALGIA
     Route: 048
     Dates: start: 20080501
  6. ZALDIAR [Concomitant]
     Indication: ARTHRALGIA
     Dosage: 37.5 MG/325 MG, TWICE DAILY
     Route: 048

REACTIONS (4)
  - DRUG INTERACTION [None]
  - HYPERKALAEMIA [None]
  - HYPONATRAEMIA [None]
  - RENAL FAILURE ACUTE [None]
